FAERS Safety Report 14091117 (Version 2)
Quarter: 2017Q4

REPORT INFORMATION
  Report Type: Report from Study
  Country: BR (occurrence: BR)
  Receive Date: 20171016
  Receipt Date: 20171017
  Transmission Date: 20180321
  Serious: Yes (Death, Hospitalization)
  Sender: FDA-Public Use
  Company Number: BR-ROCHE-2006293

PATIENT
  Sex: Female
  Weight: 63 kg

DRUGS (4)
  1. XOLAIR [Suspect]
     Active Substance: OMALIZUMAB
     Indication: ASTHMA
     Dosage: 2 DF, QMO
     Route: 058
  2. BRIMONIDINE TARTRATE. [Concomitant]
     Active Substance: BRIMONIDINE TARTRATE
     Indication: GLAUCOMA
     Dosage: 3 GTT, QD (FIVE YEARS AGO)
     Route: 047
  3. LUMIGAN [Concomitant]
     Active Substance: BIMATOPROST
     Indication: GLAUCOMA
     Dosage: 1 GTT, QD ON EACH EYE (FIVE YEARS AGO)
     Route: 047
  4. AZOPT [Concomitant]
     Active Substance: BRINZOLAMIDE
     Indication: GLAUCOMA
     Dosage: 3 GTT, QD (FIVE YEARS AGO)
     Route: 047

REACTIONS (8)
  - Respiratory arrest [Fatal]
  - Thyroid disorder [Recovering/Resolving]
  - Pain [Recovering/Resolving]
  - Therapeutic procedure [Unknown]
  - Gastrointestinal carcinoma [Recovering/Resolving]
  - Blood pressure increased [Unknown]
  - Cardiac arrest [Fatal]
  - Gait disturbance [Unknown]
